FAERS Safety Report 21591033 (Version 3)
Quarter: 2022Q4

REPORT INFORMATION
  Report Type: Report from Study
  Country: US (occurrence: US)
  Receive Date: 20221114
  Receipt Date: 20221219
  Transmission Date: 20230113
  Serious: No
  Sender: FDA-Public Use
  Company Number: US-BIOVITRUM-2022US10758

PATIENT
  Sex: Female

DRUGS (2)
  1. KINERET [Suspect]
     Active Substance: ANAKINRA
     Indication: Product used for unknown indication
  2. KINERET [Suspect]
     Active Substance: ANAKINRA

REACTIONS (8)
  - Illness [Unknown]
  - Influenza [Unknown]
  - Peripheral swelling [Unknown]
  - Back pain [Unknown]
  - Arthritis [Unknown]
  - Injection site pain [Unknown]
  - Product dose omission issue [Unknown]
  - Off label use [Unknown]
